FAERS Safety Report 6787542-9 (Version None)
Quarter: 2010Q2

REPORT INFORMATION
  Report Type: 
  Country: None (occurrence: None)
  Receive Date: 20100623
  Receipt Date: 20070727
  Transmission Date: 20101027
  Serious: Yes (Other)
  Sender: FDA-Public Use
  Company Number: US-PFIZER INC-2007040592

PATIENT
  Sex: Male

DRUGS (1)
  1. SUTENT [Suspect]
     Indication: NEOPLASM MALIGNANT

REACTIONS (9)
  - ADVERSE EVENT [None]
  - ASTHENIA [None]
  - CONSTIPATION [None]
  - DEFAECATION URGENCY [None]
  - DIARRHOEA [None]
  - FAECAL INCONTINENCE [None]
  - FATIGUE [None]
  - NAUSEA [None]
  - VOMITING [None]
